FAERS Safety Report 4980569-9 (Version None)
Quarter: 2006Q2

REPORT INFORMATION
  Report Type: 
  Country: None (occurrence: None)
  Receive Date: 20060424
  Receipt Date: 20050722
  Transmission Date: 20061013
  Serious: Yes (Hospitalization, Disabling)
  Sender: FDA-Public Use
  Company Number: US-MERCK-0507USA03784

PATIENT
  Age: 56 Year
  Sex: Male

DRUGS (10)
  1. VIOXX [Suspect]
     Indication: INTERVERTEBRAL DISC DISORDER
     Route: 048
  2. ECOTRIN [Concomitant]
     Route: 065
  3. LIPITOR [Concomitant]
     Route: 065
  4. AVANDIA [Concomitant]
     Route: 065
  5. GLUCOTROL [Concomitant]
     Route: 065
  6. GLUCOPHAGE [Concomitant]
     Route: 065
  7. ATENOLOL [Concomitant]
     Route: 065
  8. BENADRYL [Concomitant]
     Route: 065
  9. NITROSTAT [Concomitant]
     Route: 065
  10. SYNTHROID [Concomitant]
     Route: 065

REACTIONS (4)
  - BLOOD PRESSURE INCREASED [None]
  - CARDIAC ARREST [None]
  - CHEST PAIN [None]
  - MYOCARDIAL INFARCTION [None]
